FAERS Safety Report 11074154 (Version 1)
Quarter: 2015Q2

REPORT INFORMATION
  Report Type: Spontaneous
  Country: US (occurrence: None)
  Receive Date: 20150428
  Receipt Date: 20150428
  Transmission Date: 20150821
  Serious: Yes (Other)
  Sender: FDA-Public Use
  Company Number: None

PATIENT
  Age: 60 Year
  Sex: Male
  Weight: 88.45 kg

DRUGS (4)
  1. RELAFEN [Suspect]
     Active Substance: NABUMETONE
     Indication: NECK PAIN
     Dosage: AS NEEDED FOR PAIN
     Route: 048
     Dates: start: 20140701, end: 20150126
  2. RELAFEN [Suspect]
     Active Substance: NABUMETONE
     Indication: PROCEDURAL PAIN
     Dosage: AS NEEDED FOR PAIN
     Route: 048
     Dates: start: 20140701, end: 20150126
  3. RELAFEN [Suspect]
     Active Substance: NABUMETONE
     Indication: SIMILAR REACTION ON PREVIOUS EXPOSURE TO DRUG
     Dosage: AS NEEDED FOR PAIN
     Route: 048
     Dates: start: 20140701, end: 20150126
  4. NEXIUM [Concomitant]
     Active Substance: ESOMEPRAZOLE MAGNESIUM

REACTIONS (8)
  - Balance disorder [None]
  - Mood swings [None]
  - Anger [None]
  - Rash [None]
  - Irritability [None]
  - Aggression [None]
  - Skin discolouration [None]
  - Disturbance in attention [None]

NARRATIVE: CASE EVENT DATE: 20150106
